FAERS Safety Report 13646316 (Version 1)
Quarter: 2017Q2

REPORT INFORMATION
  Report Type: Spontaneous
  Country: FR (occurrence: FR)
  Receive Date: 20170613
  Receipt Date: 20170613
  Transmission Date: 20170830
  Serious: Yes (Hospitalization, Other)
  Sender: FDA-Public Use
  Company Number: FR-ACCORD-052417

PATIENT
  Age: 79 Year
  Sex: Male

DRUGS (1)
  1. TRAMADOL/TRAMADOL HYDROCHLORIDE [Suspect]
     Active Substance: TRAMADOL HYDROCHLORIDE
     Indication: HERPES ZOSTER

REACTIONS (3)
  - Acute kidney injury [Unknown]
  - Vomiting [Unknown]
  - Dehydration [Unknown]
